FAERS Safety Report 7371325-5 (Version None)
Quarter: 2011Q1

REPORT INFORMATION
  Report Type: 
  Country: None (occurrence: None)
  Receive Date: 20110324
  Receipt Date: 20110315
  Transmission Date: 20110831
  Serious: Yes (Hospitalization, Other)
  Sender: FDA-Public Use
  Company Number: US-JNJFOC-20110307146

PATIENT
  Sex: Female

DRUGS (18)
  1. FENTANYL-100 [Suspect]
     Route: 062
  2. FENTANYL CITRATE [Suspect]
     Indication: BACK PAIN
     Route: 062
  3. FENTANYL-100 [Suspect]
     Route: 062
  4. FENTANYL CITRATE [Suspect]
     Indication: FIBROMYALGIA
     Route: 062
  5. FENTANYL-100 [Suspect]
     Indication: BACK PAIN
     Route: 062
  6. FENTANYL-100 [Suspect]
     Route: 062
  7. FENTANYL-100 [Suspect]
     Indication: BACK PAIN
     Route: 062
  8. XANAX [Concomitant]
     Indication: ANXIETY
     Route: 048
  9. FENTANYL-100 [Suspect]
     Indication: INTERVERTEBRAL DISC DEGENERATION
     Route: 062
  10. FENTANYL-100 [Suspect]
     Route: 062
  11. FENTANYL-100 [Suspect]
     Route: 062
  12. CYMBALTA [Concomitant]
     Indication: PAIN
     Route: 048
  13. FENTANYL-100 [Suspect]
     Route: 062
  14. FENTANYL-100 [Suspect]
     Indication: FIBROMYALGIA
     Route: 062
  15. FENTANYL-100 [Suspect]
     Indication: INTERVERTEBRAL DISC DEGENERATION
     Route: 062
  16. FENTANYL-100 [Suspect]
     Indication: FIBROMYALGIA
     Route: 062
  17. FENTANYL CITRATE [Suspect]
     Indication: INTERVERTEBRAL DISC DEGENERATION
     Route: 062
  18. CYMBALTA [Concomitant]
     Indication: DEPRESSION
     Route: 048

REACTIONS (11)
  - ASTHMA [None]
  - MUSCLE SPASMS [None]
  - ROAD TRAFFIC ACCIDENT [None]
  - DRUG INEFFECTIVE [None]
  - DRUG DISPENSING ERROR [None]
  - WRONG TECHNIQUE IN DRUG USAGE PROCESS [None]
  - PAIN [None]
  - APPLICATION SITE IRRITATION [None]
  - EXPIRED DRUG ADMINISTERED [None]
  - DRUG DOSE OMISSION [None]
  - PRODUCT ADHESION ISSUE [None]
